FAERS Safety Report 9373982 (Version 3)
Quarter: 2013Q3

REPORT INFORMATION
  Report Type: Report from Study
  Country: HK (occurrence: HK)
  Receive Date: 20130628
  Receipt Date: 20130805
  Transmission Date: 20140515
  Serious: Yes (Other)
  Sender: FDA-Public Use
  Company Number: HK-ROCHE-1240293

PATIENT
  Age: 67 Year
  Sex: Male

DRUGS (2)
  1. ZELBORAF [Suspect]
     Indication: MALIGNANT MELANOMA
     Route: 048
     Dates: start: 20130207
  2. LEGALON [Concomitant]
     Route: 065
     Dates: start: 20130307, end: 20130319

REACTIONS (3)
  - Skin exfoliation [Unknown]
  - Oesophagitis [Unknown]
  - Dermatitis acneiform [Unknown]
